FAERS Safety Report 17483606 (Version 1)
Quarter: 2020Q1

REPORT INFORMATION
  Report Type: Spontaneous
  Country: CN (occurrence: CN)
  Receive Date: 20200302
  Receipt Date: 20200302
  Transmission Date: 20200409
  Serious: Yes (Hospitalization, Other)
  Sender: FDA-Public Use
  Company Number: CN-009507513-2003CHN000242

PATIENT
  Age: 17 Year
  Sex: Male
  Weight: 60 kg

DRUGS (4)
  1. LANSOPRAZOLE. [Suspect]
     Active Substance: LANSOPRAZOLE
     Indication: ANTACID THERAPY
     Dosage: 30 MILLIGRAM, QD
     Route: 041
     Dates: start: 20200206, end: 20200213
  2. SODIUM CHLORIDE. [Suspect]
     Active Substance: SODIUM CHLORIDE
     Indication: ANTACID THERAPY
     Dosage: 100 MILLILITRE PER KILOGRAM
     Route: 041
     Dates: start: 20200206, end: 20200213
  3. SINGULAIR [Suspect]
     Active Substance: MONTELUKAST SODIUM
     Indication: ANTIALLERGIC THERAPY
     Dosage: 10 MILLIGRAM, QD
     Route: 048
     Dates: start: 20200206, end: 20200213
  4. EBASTINE [Suspect]
     Active Substance: EBASTINE
     Indication: ANTIALLERGIC THERAPY
     Dosage: 10 MILLIGRAM, QD
     Route: 048
     Dates: start: 20200206, end: 20200213

REACTIONS (5)
  - Drug-induced liver injury [Recovering/Resolving]
  - Faeces hard [Unknown]
  - Decreased appetite [Unknown]
  - Hepatic enzyme increased [Recovering/Resolving]
  - Faeces discoloured [Unknown]

NARRATIVE: CASE EVENT DATE: 20200212
